FAERS Safety Report 9348218 (Version 1)
Quarter: 2013Q2

REPORT INFORMATION
  Report Type: Spontaneous
  Country: US (occurrence: None)
  Receive Date: 20130612
  Receipt Date: 20130612
  Transmission Date: 20140414
  Serious: Yes (Other)
  Sender: FDA-Public Use
  Company Number: None

PATIENT
  Age: 56 Year
  Sex: Female
  Weight: 49.9 kg

DRUGS (2)
  1. LEVOFLOXACIN [Suspect]
     Route: 048
     Dates: start: 20121117, end: 20121126
  2. METHYLPREDNISOLON [Suspect]
     Dosage: AS DIRECTED
     Route: 048
     Dates: start: 20121121, end: 20121127

REACTIONS (9)
  - Bursitis [None]
  - Joint swelling [None]
  - Contusion [None]
  - Petechiae [None]
  - Arthralgia [None]
  - Tendonitis [None]
  - Disease recurrence [None]
  - Tendon disorder [None]
  - Drug interaction [None]
